FAERS Safety Report 20384044 (Version 1)
Quarter: 2022Q1

REPORT INFORMATION
  Report Type: Spontaneous
  Country: US (occurrence: None)
  Receive Date: 20220127
  Receipt Date: 20220127
  Transmission Date: 20220423
  Serious: Yes (Other)
  Sender: FDA-Public Use
  Company Number: None

PATIENT
  Sex: Female

DRUGS (1)
  1. EVENITY [Suspect]
     Active Substance: ROMOSOZUMAB-AQQG
     Indication: Osteoporosis
     Dosage: OTHER FREQUENCY : 2 SYRINGES MONTHLY;?
     Route: 030

REACTIONS (6)
  - Arthralgia [None]
  - Groin pain [None]
  - Pain in extremity [None]
  - Gait disturbance [None]
  - Dysstasia [None]
  - Pain [None]

NARRATIVE: CASE EVENT DATE: 20211117
